FAERS Safety Report 16340942 (Version 2)
Quarter: 2019Q2

REPORT INFORMATION
  Report Type: Spontaneous
  Country: CA (occurrence: CA)
  Receive Date: 20190522
  Receipt Date: 20190626
  Transmission Date: 20190711
  Serious: Yes (Hospitalization, Other)
  Sender: FDA-Public Use
  Company Number: CA-AUROBINDO-AUR-APL-2019-027955

PATIENT

DRUGS (21)
  1. GEN-CLOZAPINE [Suspect]
     Active Substance: CLOZAPINE
     Dosage: 12.5 MILLIGRAM, UNK
     Route: 048
  2. CLOZAPINE MYLAN [Suspect]
     Active Substance: CLOZAPINE
     Indication: PRODUCT USED FOR UNKNOWN INDICATION
     Dosage: 50 MILLIGRAM, ONCE A DAY
     Route: 048
  3. GEN-CLOZAPINE [Suspect]
     Active Substance: CLOZAPINE
     Dosage: 37.5 MILLIGRAM, UNK
     Route: 048
  4. CLOZAPINE MYLAN [Suspect]
     Active Substance: CLOZAPINE
     Dosage: 75 MILLIGRAM, ONCE A DAY
     Route: 048
  5. GEN-CLOZAPINE [Suspect]
     Active Substance: CLOZAPINE
     Dosage: 10 MILLIGRAM, ONCE A DAY
     Route: 048
  6. CLOZARIL [Suspect]
     Active Substance: CLOZAPINE
     Indication: PRODUCT USED FOR UNKNOWN INDICATION
     Dosage: 25 MILLIGRAM, ONCE A DAY
     Route: 048
  7. CLOZAPINE MYLAN [Suspect]
     Active Substance: CLOZAPINE
     Dosage: 37.5 MILLIGRAM, ONCE A DAY
     Route: 048
  8. CLOZARIL [Suspect]
     Active Substance: CLOZAPINE
     Dosage: 75 MILLIGRAM, ONCE A DAY
     Route: 048
  9. GEN-CLOZAPINE [Suspect]
     Active Substance: CLOZAPINE
     Indication: PRODUCT USED FOR UNKNOWN INDICATION
     Dosage: 20 MILLIGRAM, ONCE A DAY
     Route: 048
  10. GEN-CLOZAPINE [Suspect]
     Active Substance: CLOZAPINE
     Dosage: 25 MILLIGRAM, UNK
     Route: 048
  11. FLUVOXAMINE [Concomitant]
     Active Substance: FLUVOXAMINE
     Indication: PRODUCT USED FOR UNKNOWN INDICATION
     Dosage: UNK
     Route: 048
  12. CLOZAPINE MYLAN [Suspect]
     Active Substance: CLOZAPINE
     Dosage: 12.5 MILLIGRAM, ONCE A DAY
     Route: 048
  13. GEN-CLOZAPINE [Suspect]
     Active Substance: CLOZAPINE
     Dosage: 75 MILLIGRAM, UNK
     Route: 048
  14. GEN-CLOZAPINE [Suspect]
     Active Substance: CLOZAPINE
     Dosage: 50 MILLIGRAM, UNK
     Route: 048
  15. METOPROLOL. [Concomitant]
     Active Substance: METOPROLOL
     Indication: PRODUCT USED FOR UNKNOWN INDICATION
     Dosage: UNK
     Route: 065
  16. OLANZAPINE. [Suspect]
     Active Substance: OLANZAPINE
     Indication: PRODUCT USED FOR UNKNOWN INDICATION
     Dosage: 10 MILLIGRAM, ONCE A DAY
     Route: 065
  17. OLANZAPINE. [Suspect]
     Active Substance: OLANZAPINE
     Dosage: 20 MILLIGRAM, ONCE A DAY
     Route: 065
  18. CLOZAPINE MYLAN [Suspect]
     Active Substance: CLOZAPINE
     Dosage: 25 MILLIGRAM, ONCE A DAY
     Route: 048
  19. CLOZARIL [Suspect]
     Active Substance: CLOZAPINE
     Dosage: 12.5 MILLIGRAM, ONCE A DAY
     Route: 048
  20. CLOZARIL [Suspect]
     Active Substance: CLOZAPINE
     Dosage: 50 MILLIGRAM, ONCE A DAY
     Route: 048
  21. CLOZARIL [Suspect]
     Active Substance: CLOZAPINE
     Dosage: 37.5 MILLIGRAM, ONCE A DAY
     Route: 048

REACTIONS (10)
  - Dyspnoea [Unknown]
  - Bronchospasm [Unknown]
  - Neutrophil count increased [Unknown]
  - Eosinophil count increased [Unknown]
  - White blood cell count increased [Unknown]
  - Chest discomfort [Unknown]
  - Troponin increased [Unknown]
  - C-reactive protein increased [Unknown]
  - Hypoxia [Unknown]
  - Lymphocyte count decreased [Unknown]
